FAERS Safety Report 5429527-0 (Version None)
Quarter: 2007Q3

REPORT INFORMATION
  Report Type: 
  Country: None (occurrence: None)
  Receive Date: 20070829
  Receipt Date: 20061113
  Transmission Date: 20080115
  Serious: No
  Sender: FDA-Public Use
  Company Number: A0615772A

PATIENT
  Age: 69 Year
  Sex: Female

DRUGS (6)
  1. BECONASE [Suspect]
     Route: 045
  2. REQUIP [Concomitant]
  3. XALATAN [Concomitant]
  4. ZESTRIL [Concomitant]
  5. ZIAC [Concomitant]
  6. LEVOXYL [Concomitant]

REACTIONS (6)
  - DRY THROAT [None]
  - INCORRECT DOSE ADMINISTERED [None]
  - LARYNGITIS [None]
  - PHARMACEUTICAL PRODUCT COMPLAINT [None]
  - PHARYNGOLARYNGEAL PAIN [None]
  - SPEECH DISORDER [None]
